FAERS Safety Report 10516527 (Version 1)
Quarter: 2014Q3

REPORT INFORMATION
  Report Type: Spontaneous
  Country: US (occurrence: None)
  Receive Date: 20140926
  Receipt Date: 20140926
  Transmission Date: 20150326
  Serious: No
  Sender: FDA-Public Use
  Company Number: 1000069864

PATIENT
  Age: 68 Year
  Sex: Female

DRUGS (8)
  1. TOPROL (METOPROLOL SUCCINATE) [Concomitant]
  2. TUDORZA PRESSAIR [Concomitant]
     Active Substance: ACLIDINIUM BROMIDE
  3. NEXIUM [Concomitant]
     Active Substance: ESOMEPRAZOLE MAGNESIUM
  4. CRESTOR [Concomitant]
     Active Substance: ROSUVASTATIN CALCIUM
  5. LINZESS [Suspect]
     Active Substance: LINACLOTIDE
     Indication: IRRITABLE BOWEL SYNDROME
     Route: 048
     Dates: start: 20140807, end: 20140810
  6. SYNTHROID [Concomitant]
     Active Substance: LEVOTHYROXINE SODIUM
  7. ELAVIL (AMITRIPTYLINE) [Concomitant]
  8. SINGULAIR (MONTELUKAST SODIUM) [Concomitant]

REACTIONS (2)
  - Dizziness [None]
  - Dry mouth [None]

NARRATIVE: CASE EVENT DATE: 20140808
